FAERS Safety Report 4459846-6 (Version None)
Quarter: 2004Q3

REPORT INFORMATION
  Report Type: 
  Country: None (occurrence: None)
  Receive Date: 20040928
  Receipt Date: 20040218
  Transmission Date: 20050211
  Serious: No
  Sender: FDA-Public Use
  Company Number: US-BRISTOL-MYERS SQUIBB COMPANY-12510376

PATIENT
  Age: 1 Year
  Sex: Male

DRUGS (1)
  1. TRIMOX [Suspect]
     Indication: EAR INFECTION
     Route: 048

REACTIONS (1)
  - MEDICATION ERROR [None]
